FAERS Safety Report 9309028 (Version 1)
Quarter: 2013Q2

REPORT INFORMATION
  Report Type: Spontaneous
  Country: US (occurrence: US)
  Receive Date: 20130524
  Receipt Date: 20130524
  Transmission Date: 20140414
  Serious: No
  Sender: FDA-Public Use
  Company Number: US-009507513-1305USA003039

PATIENT
  Sex: Male

DRUGS (2)
  1. COSOPT [Suspect]
     Route: 047
  2. COSOPT [Suspect]
     Route: 047

REACTIONS (1)
  - Ocular discomfort [Unknown]
